FAERS Safety Report 12826223 (Version 1)
Quarter: 2016Q4

REPORT INFORMATION
  Report Type: Spontaneous
  Country: US (occurrence: US)
  Receive Date: 20161007
  Receipt Date: 20161007
  Transmission Date: 20170207
  Serious: No
  Sender: FDA-Public Use
  Company Number: US-WATSON-2016-00388

PATIENT
  Age: 57 Year
  Sex: Female

DRUGS (3)
  1. TOPAMAX [Concomitant]
     Active Substance: TOPIRAMATE
     Indication: CLUSTER HEADACHE
     Dosage: UNK, UNKNOWN
     Route: 065
  2. FENTANYL-25 (WATSON LABORATORIES) [Suspect]
     Active Substance: FENTANYL
     Dosage: 25 MCG/HR, ONLY USED ONE PATCH
     Route: 062
     Dates: start: 20160107, end: 20160108
  3. FENTANYL-25 (WATSON LABORATORIES) [Suspect]
     Active Substance: FENTANYL
     Indication: PAIN
     Dosage: 25 MCG, UNKNOWN
     Route: 062
     Dates: start: 20160111, end: 20160112

REACTIONS (6)
  - Drug ineffective [Recovered/Resolved]
  - Hot flush [Recovered/Resolved]
  - Headache [Recovered/Resolved]
  - Dizziness [Recovered/Resolved]
  - Wrong technique in product usage process [Recovered/Resolved]
  - Nausea [Recovered/Resolved]

NARRATIVE: CASE EVENT DATE: 201601
